FAERS Safety Report 5068832-7 (Version None)
Quarter: 2006Q3

REPORT INFORMATION
  Report Type: 
  Country: None (occurrence: None)
  Receive Date: 20060802
  Receipt Date: 20060426
  Transmission Date: 20061208
  Serious: No
  Sender: FDA-Public Use
  Company Number: US-BRISTOL-MYERS SQUIBB COMPANY-13357041

PATIENT
  Age: 64 Year
  Sex: Female
  Weight: 60 kg

DRUGS (3)
  1. COUMADIN [Suspect]
     Indication: CEREBROVASCULAR ACCIDENT
     Dosage: PRIOR DOSE: 2.5 MG/D X 6 DAYS/WK WITH A BREAK IN REGIMEN FOR 1 DAY; FOR THE LAST 5 MONTHS: 2.5 MG/D
     Route: 048
     Dates: start: 20051101
  2. VYTORIN [Concomitant]
  3. FOLBIC [Concomitant]

REACTIONS (1)
  - ALOPECIA [None]
